FAERS Safety Report 18535500 (Version 2)
Quarter: 2021Q3

REPORT INFORMATION
  Report Type: Spontaneous
  Country: US (occurrence: US)
  Receive Date: 20201123
  Receipt Date: 20210907
  Transmission Date: 20211014
  Serious: Yes (Other)
  Sender: FDA-Public Use
  Company Number: US-MYLANLABS-2020M1096227

PATIENT
  Sex: Male
  Weight: 88 kg

DRUGS (3)
  1. AMLODIPINE BESYLATE AND VALSARTAN [Suspect]
     Active Substance: AMLODIPINE BESYLATE\VALSARTAN
     Dosage: UNK
     Route: 048
     Dates: start: 20170625, end: 20181102
  2. OXYCODONE [Suspect]
     Active Substance: OXYCODONE
     Indication: PRODUCT USED FOR UNKNOWN INDICATION
     Dosage: 2.5 MILLIGRAM, PRN (2.5?5 MG, ORAL, EVERY 4 TO 6 HOURS PRN)
     Route: 048
  3. AMLODIPINE BESYLATE AND VALSARTAN [Suspect]
     Active Substance: AMLODIPINE BESYLATE\VALSARTAN
     Indication: ESSENTIAL HYPERTENSION
     Dosage: 1 DOSAGE FORM, QD (TAKE 1 TABLET BY MOUTH DAILY.)
     Route: 048
     Dates: start: 20150605, end: 20170828

REACTIONS (1)
  - Pancreatic carcinoma [Unknown]
